FAERS Safety Report 7377496-9 (Version None)
Quarter: 2011Q1

REPORT INFORMATION
  Report Type: 
  Country: None (occurrence: None)
  Receive Date: 20110328
  Receipt Date: 20110322
  Transmission Date: 20110831
  Serious: Yes (Life-Threatening, Hospitalization)
  Sender: FDA-Public Use
  Company Number: PHHY2009JP58785

PATIENT
  Age: 60 Year
  Sex: Male

DRUGS (3)
  1. ANGIOTENSIN CONVERTING ENZYME BLOCKERS [Suspect]
  2. LISINOPRIL [Suspect]
     Route: 048
  3. DIOVAN [Suspect]
     Indication: HYPERTENSION
     Route: 048

REACTIONS (13)
  - SWELLING [None]
  - ANGIOEDEMA [None]
  - LOCAL SWELLING [None]
  - WHITE BLOOD CELL COUNT INCREASED [None]
  - PHARYNGEAL OEDEMA [None]
  - DYSPNOEA [None]
  - SWOLLEN TONGUE [None]
  - DYSKINESIA [None]
  - OEDEMA PERIPHERAL [None]
  - BLOOD IMMUNOGLOBULIN E INCREASED [None]
  - LARYNGEAL OEDEMA [None]
  - LIP OEDEMA [None]
  - RESPIRATORY ARREST [None]
